FAERS Safety Report 18665700 (Version 1)
Quarter: 2020Q4

REPORT INFORMATION
  Report Type: Spontaneous
  Country: US (occurrence: US)
  Receive Date: 20201226
  Receipt Date: 20201226
  Transmission Date: 20210114
  Serious: No
  Sender: FDA-Public Use
  Company Number: US-TAKEDA-2020TUS060023

PATIENT
  Age: 64 Year
  Sex: Female
  Weight: 77 kg

DRUGS (6)
  1. AMITRIPTYLINE [Concomitant]
     Active Substance: AMITRIPTYLINE
     Dosage: UNK
  2. LYRICA [Concomitant]
     Active Substance: PREGABALIN
     Dosage: UNK
  3. ZOLOFT [Concomitant]
     Active Substance: SERTRALINE HYDROCHLORIDE
     Dosage: UNK
  4. MOTEGRITY [Suspect]
     Active Substance: PRUCALOPRIDE SUCCINATE
     Indication: INFLAMMATORY BOWEL DISEASE
     Dosage: 2 MILLIGRAM, 2/WEEK
     Route: 065
     Dates: start: 202012
  5. MOTEGRITY [Suspect]
     Active Substance: PRUCALOPRIDE SUCCINATE
     Dosage: 2 MILLIGRAM, 3/WEEK
     Route: 065
     Dates: start: 20201220
  6. MOTEGRITY [Suspect]
     Active Substance: PRUCALOPRIDE SUCCINATE
     Indication: CONSTIPATION
     Dosage: 2 MILLIGRAM, 1/WEEK
     Route: 065
     Dates: start: 20201109

REACTIONS (3)
  - Depression [Unknown]
  - Crying [Unknown]
  - Depressed mood [Unknown]

NARRATIVE: CASE EVENT DATE: 20201220
